FAERS Safety Report 10218445 (Version 3)
Quarter: 2014Q2

REPORT INFORMATION
  Report Type: Spontaneous
  Country: JP (occurrence: JP)
  Receive Date: 20140605
  Receipt Date: 20140611
  Transmission Date: 20141212
  Serious: Yes (Hospitalization, Other)
  Sender: FDA-Public Use
  Company Number: PHHY2014JP051170

PATIENT
  Age: 73 Year
  Sex: Male

DRUGS (10)
  1. AFINITOR [Suspect]
     Indication: METASTATIC RENAL CELL CARCINOMA
     Dosage: 5 MG, DAILY
     Route: 048
     Dates: start: 20131126, end: 20140415
  2. ALDOMET [Concomitant]
     Indication: HYPERTENSION
     Dosage: 750 MG, UNK
     Route: 048
  3. ALFAROL [Concomitant]
     Indication: RENAL FAILURE CHRONIC
     Dosage: 0.25 UG, UNK
     Route: 048
  4. ADALAT [Concomitant]
     Indication: HYPERTENSION
     Dosage: 20 MG, UNK
     Route: 048
  5. THYRADIN S [Concomitant]
     Indication: THYROID CANCER
     Dosage: 50 MG, UNK
     Route: 048
  6. MAINTATE [Concomitant]
     Indication: HYPERTENSION
     Dosage: 2.5 MG, UNK
     Route: 048
  7. GLYCYRON [Concomitant]
     Indication: LIVER DISORDER
     Dosage: 3 DF, UNK
     Route: 048
  8. URSO [Concomitant]
     Indication: LIVER DISORDER
     Dosage: 300 MG, UNK
     Route: 048
  9. LASIX [Concomitant]
     Indication: HYPERTENSION
     Dosage: 40 MG, UNK
     Route: 048
  10. LASIX [Concomitant]
     Dosage: 20 MG, UNK
     Route: 048

REACTIONS (3)
  - Pericardial effusion [Recovered/Resolved]
  - Diarrhoea [Recovered/Resolved]
  - Malignant neoplasm progression [Not Recovered/Not Resolved]
